FAERS Safety Report 5776015-8 (Version None)
Quarter: 2008Q2

REPORT INFORMATION
  Report Type: 
  Country: None (occurrence: None)
  Receive Date: 20080617
  Receipt Date: 20080612
  Transmission Date: 20081010
  Serious: Yes (Hospitalization)
  Sender: FDA-Public Use
  Company Number: DE-ABBOTT-08P-062-0456959-00

PATIENT
  Age: 15 Year
  Sex: Female

DRUGS (1)
  1. KLACID PRO [Suspect]
     Indication: TONSILLITIS
     Route: 048
     Dates: start: 20080601, end: 20080601

REACTIONS (1)
  - SWELLING FACE [None]
